FAERS Safety Report 5120516-2 (Version None)
Quarter: 2006Q4

REPORT INFORMATION
  Report Type: 
  Country: None (occurrence: None)
  Receive Date: 20061004
  Receipt Date: 20060824
  Transmission Date: 20070319
  Serious: Yes (Death)
  Sender: FDA-Public Use
  Company Number: FR-AVENTIS-200612937FR

PATIENT
  Age: 89 Year
  Sex: Female
  Weight: 64 kg

DRUGS (8)
  1. FLAGYL [Suspect]
     Indication: LUNG DISORDER
     Route: 048
     Dates: start: 20060725, end: 20060727
  2. PREVISCAN                          /00789001/ [Suspect]
     Route: 048
     Dates: end: 20060727
  3. ROCEPHINE                          /00672201/ [Suspect]
     Indication: LUNG DISORDER
     Route: 042
     Dates: start: 20060722, end: 20060727
  4. FUROSEMIDE [Suspect]
     Indication: ESSENTIAL HYPERTENSION
     Route: 048
     Dates: end: 20060722
  5. ACETAMINOPHEN [Suspect]
     Indication: LUNG DISORDER
     Route: 048
     Dates: start: 20060724, end: 20060727
  6. RAMIPRIL [Suspect]
     Indication: ESSENTIAL HYPERTENSION
     Route: 048
     Dates: end: 20060722
  7. CETORNAN [Concomitant]
  8. VOGALENE [Concomitant]

REACTIONS (1)
  - TOXIC EPIDERMAL NECROLYSIS [None]
